FAERS Safety Report 7660248-X (Version None)
Quarter: 2011Q3

REPORT INFORMATION
  Report Type: 
  Country: None (occurrence: None)
  Receive Date: 20110805
  Receipt Date: 20110803
  Transmission Date: 20111222
  Serious: No
  Sender: FDA-Public Use
  Company Number: US-TEVA-294814USA

PATIENT
  Age: 52 Year
  Sex: Male

DRUGS (10)
  1. AMLODIPINE [Concomitant]
     Dosage: 10 MILLIGRAM;
  2. QUETIAPINE [Concomitant]
     Dosage: 400 MILLIGRAM;
  3. LOPERAMIDE HYDROCHLORIDE [Concomitant]
  4. FERROUS SULFATE TAB [Concomitant]
  5. RISPERIDONE [Concomitant]
     Dosage: 8 MILLIGRAM;
  6. PANADEINE CO [Concomitant]
  7. CLONAZEPAM [Concomitant]
     Dosage: 1 MILLIGRAM;
  8. ASCORBIC ACID [Concomitant]
  9. COPAXONE [Suspect]
     Indication: MULTIPLE SCLEROSIS
     Route: 058
  10. POLYCARBOPHIL CALCIUM [Concomitant]
     Dosage: 2 TABLETS

REACTIONS (4)
  - DYSPNOEA [None]
  - HYPOAESTHESIA [None]
  - BACK PAIN [None]
  - PALPITATIONS [None]
